FAERS Safety Report 9880512 (Version 1)
Quarter: 2014Q1

REPORT INFORMATION
  Report Type: Spontaneous
  Country: IT (occurrence: None)
  Receive Date: 20140205
  Receipt Date: 20140205
  Transmission Date: 20141002
  Serious: Yes (Other)
  Sender: FDA-Public Use
  Company Number: QPAP20140001

PATIENT
  Age: 10 Year
  Sex: Male

DRUGS (1)
  1. Q-PAP (PARACETAMOL) [Suspect]
     Indication: PYREXIA

REACTIONS (2)
  - Hypersensitivity vasculitis [None]
  - Hypersensitivity vasculitis [None]
